FAERS Safety Report 7486195-4 (Version None)
Quarter: 2011Q2

REPORT INFORMATION
  Report Type: 
  Country: None (occurrence: None)
  Receive Date: 20110517
  Receipt Date: 20110420
  Transmission Date: 20111010
  Serious: Yes (Other)
  Sender: FDA-Public Use
  Company Number: US-BAYER-201014091NA

PATIENT
  Age: 25 Year
  Sex: Female
  Weight: 68.027 kg

DRUGS (4)
  1. PRENATAL VITAMINS [Concomitant]
     Indication: PRENATAL CARE
     Dosage: UNK UNK, QD
     Dates: start: 20040701
  2. FERROUS SULFATE TAB [Concomitant]
     Indication: PRENATAL CARE
     Dosage: UNK UNK, QD
  3. CALCIUM [Concomitant]
     Indication: PRENATAL CARE
     Dosage: UNK UNK, QD
  4. YASMIN [Suspect]
     Indication: PRODUCT USED FOR UNKNOWN INDICATION
     Route: 048

REACTIONS (3)
  - GALLBLADDER DISORDER [None]
  - PAIN [None]
  - CHOLELITHIASIS [None]
